FAERS Safety Report 25009450 (Version 2)
Quarter: 2025Q1

REPORT INFORMATION
  Report Type: Spontaneous
  Country: BR (occurrence: BR)
  Receive Date: 20250225
  Receipt Date: 20250320
  Transmission Date: 20250408
  Serious: No
  Sender: TOLMAR
  Company Number: BR-TOLMAR, INC.-25BR055950

PATIENT
  Sex: Male

DRUGS (3)
  1. ELIGARD [Suspect]
     Active Substance: LEUPROLIDE ACETATE
     Indication: Prostate cancer
     Dates: start: 20241223
  2. CAPTOPRIL [Concomitant]
     Active Substance: CAPTOPRIL
     Indication: Product used for unknown indication
  3. ALBUTEROL [Concomitant]
     Active Substance: ALBUTEROL
     Indication: Product used for unknown indication

REACTIONS (4)
  - Wrong technique in product usage process [Unknown]
  - Product with quality issue administered [Unknown]
  - Product physical issue [Unknown]
  - Product deposit [Unknown]
